FAERS Safety Report 9521274 (Version 1)
Quarter: 2013Q3

REPORT INFORMATION
  Report Type: Spontaneous
  Country: US (occurrence: None)
  Receive Date: 20130911
  Receipt Date: 20130911
  Transmission Date: 20140515
  Serious: Yes (Hospitalization, Other)
  Sender: FDA-Public Use
  Company Number: 001594262A

PATIENT
  Age: 57 Year
  Sex: Female

DRUGS (2)
  1. MEANINGFUL BEAUTY ANTIOXIDANT DAY CREME WITH SPF 20 [Suspect]
     Dosage: TWICE A DAY DERMAL
     Dates: start: 20130305, end: 20130315
  2. MEANINGFUL BEAUTY SKIN BRIGHTENING DECOLLETE NECK TREATMENT SPF.15 [Suspect]
     Dosage: TWICE DAILY DERMAL
     Dates: start: 20130305, end: 20130313

REACTIONS (2)
  - Erythema [None]
  - Blister [None]
